FAERS Safety Report 4290881-7 (Version None)
Quarter: 2004Q1

REPORT INFORMATION
  Report Type: 
  Country: None (occurrence: None)
  Receive Date: 20040209
  Receipt Date: 20040126
  Transmission Date: 20041129
  Serious: Yes (Hospitalization)
  Sender: FDA-Public Use
  Company Number: EM2004-0042

PATIENT
  Age: 78 Year
  Sex: Female

DRUGS (4)
  1. PROLEUKIN [Suspect]
     Indication: RENAL CELL CARCINOMA STAGE UNSPECIFIED
     Dosage: 8 MIU, SUBCUTANEOUS
     Route: 058
     Dates: end: 20040116
  2. ROFERON-A [Suspect]
     Indication: RENAL CELL CARCINOMA STAGE UNSPECIFIED
     Dosage: 18 MIU
     Dates: end: 20040112
  3. TAVEGIL (CLEMASTINE) [Concomitant]
  4. FLUOROURACIL [Concomitant]

REACTIONS (1)
  - GENERAL PHYSICAL HEALTH DETERIORATION [None]
